FAERS Safety Report 9103592 (Version 2)
Quarter: 2013Q1

REPORT INFORMATION
  Report Type: Spontaneous
  Country: DK (occurrence: DK)
  Receive Date: 20130218
  Receipt Date: 20130301
  Transmission Date: 20140127
  Serious: Yes (Other)
  Sender: FDA-Public Use
  Company Number: DK-GLAXOSMITHKLINE-B0868199A

PATIENT
  Sex: Female
  Weight: 80 kg

DRUGS (14)
  1. LAPATINIB [Suspect]
     Indication: BREAST CANCER
     Route: 048
     Dates: start: 201207, end: 201209
  2. DOCETAXEL [Suspect]
     Indication: BREAST CANCER
     Route: 042
  3. XELODA [Suspect]
     Indication: BREAST CANCER
     Route: 048
     Dates: start: 201207, end: 201209
  4. TRASTUZUMAB [Suspect]
     Indication: BREAST CANCER
     Route: 042
     Dates: start: 20111213, end: 201207
  5. VINORELBINE [Suspect]
     Indication: BREAST CANCER
     Route: 048
     Dates: start: 201211, end: 201301
  6. CISPLATIN [Suspect]
     Indication: PRODUCT USED FOR UNKNOWN INDICATION
     Route: 065
     Dates: start: 201211, end: 201301
  7. MITOMYCIN [Suspect]
     Indication: PRODUCT USED FOR UNKNOWN INDICATION
     Route: 065
     Dates: start: 201210, end: 201211
  8. GEMCITABINE [Suspect]
     Indication: PRODUCT USED FOR UNKNOWN INDICATION
     Route: 065
     Dates: start: 201210, end: 201211
  9. TRASTUZUMAB [Suspect]
     Indication: BREAST CANCER
     Route: 042
     Dates: start: 201211, end: 201301
  10. EPIRUBICIN [Suspect]
     Indication: BREAST CANCER
     Route: 042
     Dates: start: 20111011, end: 201201
  11. CYCLOPHOSPHAMIDE [Suspect]
     Indication: BREAST CANCER
     Route: 042
     Dates: start: 20111011, end: 201201
  12. IBANDRONATE [Suspect]
     Indication: PRODUCT USED FOR UNKNOWN INDICATION
     Route: 065
  13. AMLODIPINE [Concomitant]
     Indication: HYPERTENSION
     Route: 048
  14. LISINOPRIL [Concomitant]
     Indication: HYPERTENSION
     Route: 048

REACTIONS (1)
  - Liver disorder [Not Recovered/Not Resolved]
